FAERS Safety Report 5494227-8 (Version None)
Quarter: 2007Q4

REPORT INFORMATION
  Report Type: 
  Country: None (occurrence: None)
  Receive Date: 20071024
  Receipt Date: 20071012
  Transmission Date: 20080405
  Serious: Yes (Other)
  Sender: FDA-Public Use
  Company Number: US-JNJFOC-20071003331

PATIENT
  Age: 76 Year
  Sex: Female

DRUGS (3)
  1. REOPRO [Suspect]
     Indication: ARTERIAL OCCLUSIVE DISEASE
  2. HEPARIN [Concomitant]
  3. DOPAMINE HCL [Concomitant]

REACTIONS (3)
  - CORONARY ARTERY OCCLUSION [None]
  - HYPOTENSION [None]
  - PERICARDIAL EFFUSION [None]
